FAERS Safety Report 7427400-X (Version None)
Quarter: 2011Q2

REPORT INFORMATION
  Report Type: 
  Country: None (occurrence: None)
  Receive Date: 20110420
  Receipt Date: 20110419
  Transmission Date: 20111010
  Serious: Yes (Hospitalization, Other)
  Sender: FDA-Public Use
  Company Number: JP-B.I. PHARMACEUTICALS,INC./RIDGEFIELD-2011-BP-11155NB

PATIENT
  Age: 81 Year
  Sex: Male

DRUGS (7)
  1. OINTMENT BASES [Concomitant]
     Route: 062
  2. PRAZAXA [Suspect]
     Indication: ATRIAL FIBRILLATION
     Dosage: 220 MG
     Route: 048
     Dates: start: 20110401, end: 20110416
  3. SLOW-K [Concomitant]
     Indication: HYPOKALAEMIA
     Dosage: 600 MG
     Route: 048
  4. DIGOXIN [Suspect]
     Dosage: 0.125 MG
     Route: 048
  5. MUNOBAL [Suspect]
     Indication: HYPERTENSION
     Route: 048
  6. BLOPRESS [Suspect]
     Indication: HYPERTENSION
     Dosage: 4 MG
     Route: 048
  7. LASIX [Concomitant]
     Indication: HYPERTENSION
     Dosage: 20 MG
     Route: 048

REACTIONS (7)
  - LEUKAEMIA [None]
  - ANAEMIA [None]
  - DIVERTICULUM INTESTINAL [None]
  - MELAENA [None]
  - FEMUR FRACTURE [None]
  - COLONIC POLYP [None]
  - FALL [None]
